FAERS Safety Report 6147284-X (Version None)
Quarter: 2009Q2

REPORT INFORMATION
  Report Type: 
  Country: None (occurrence: None)
  Receive Date: 20090408
  Receipt Date: 20090331
  Transmission Date: 20091009
  Serious: Yes (Hospitalization)
  Sender: FDA-Public Use
  Company Number: US-JNJFOC-20090400442

PATIENT
  Sex: Female
  Weight: 58.97 kg

DRUGS (6)
  1. RAZADYNE ER [Suspect]
     Route: 048
  2. RAZADYNE ER [Suspect]
     Route: 048
  3. RAZADYNE ER [Suspect]
     Route: 048
  4. RAZADYNE ER [Suspect]
     Indication: AMNESIA
     Route: 048
  5. TOPROL-XL [Concomitant]
     Indication: HYPERTENSION
  6. AVAPRO [Concomitant]
     Indication: HYPERTENSION

REACTIONS (3)
  - GALLBLADDER DISORDER [None]
  - NAUSEA [None]
  - VOMITING [None]
